FAERS Safety Report 23753824 (Version 1)
Quarter: 2024Q2

REPORT INFORMATION
  Report Type: Spontaneous
  Country: FR (occurrence: FR)
  Receive Date: 20240417
  Receipt Date: 20240417
  Transmission Date: 20240716
  Serious: No
  Sender: FDA-Public Use
  Company Number: FR-ROCHE-3330299

PATIENT
  Sex: Male

DRUGS (2)
  1. GAVRETO [Suspect]
     Active Substance: PRALSETINIB
     Indication: Thyroid cancer
     Dosage: TREATMENT PERIOD: 3 MONTHS, TAKE 1 HOUR BEFORE FOOD OR 2 HOURS AFTER FOOD
     Route: 048
  2. GAVRETO [Suspect]
     Active Substance: PRALSETINIB
     Indication: Medullary thyroid cancer

REACTIONS (2)
  - Off label use [Unknown]
  - Dry mouth [Unknown]
